FAERS Safety Report 9797048 (Version 1)
Quarter: 2014Q1

REPORT INFORMATION
  Report Type: Spontaneous
  Country: NZ (occurrence: NZ)
  Receive Date: 20140105
  Receipt Date: 20140105
  Transmission Date: 20141002
  Serious: Yes (Other)
  Sender: FDA-Public Use
  Company Number: NZ-MYLANLABS-2013S1028710

PATIENT
  Age: 51 Year
  Sex: Male

DRUGS (3)
  1. TRAMADOL [Suspect]
     Indication: PAIN
  2. TRAMADOL [Suspect]
     Indication: PAIN
  3. TRAMADOL [Suspect]
     Indication: PAIN

REACTIONS (2)
  - Drug dependence [Unknown]
  - Drug withdrawal headache [Unknown]
